FAERS Safety Report 24526666 (Version 1)
Quarter: 2024Q4

REPORT INFORMATION
  Report Type: Report from Study
  Country: US (occurrence: US)
  Receive Date: 20241021
  Receipt Date: 20241021
  Transmission Date: 20250115
  Serious: No
  Sender: ROCHE
  Company Number: US-ROCHE-2857298

PATIENT
  Age: 65 Year
  Sex: Male

DRUGS (14)
  1. ZELBORAF [Suspect]
     Active Substance: VEMURAFENIB
     Indication: Metabolic disorder
     Dosage: TAKE 2 TABLET(S) BY MOUTH TWICE A DAY
     Route: 048
     Dates: start: 20200512
  2. ZELBORAF [Suspect]
     Active Substance: VEMURAFENIB
     Indication: Histiocytosis
     Route: 048
     Dates: start: 20200612
  3. ZELBORAF [Suspect]
     Active Substance: VEMURAFENIB
     Indication: Erdheim-Chester disease
     Route: 048
     Dates: start: 20200918
  4. ZELBORAF [Suspect]
     Active Substance: VEMURAFENIB
     Indication: Brain neoplasm
  5. TYLENOL [Concomitant]
     Active Substance: ACETAMINOPHEN
     Indication: Pain
     Route: 048
     Dates: start: 20191210
  6. DAPSONE [Concomitant]
     Active Substance: DAPSONE
     Route: 048
  7. DECADRON [Concomitant]
     Active Substance: DEXAMETHASONE
     Indication: Brain oedema
     Route: 048
  8. HYDRALAZINE HYDROCHLORIDE [Concomitant]
     Active Substance: HYDRALAZINE HYDROCHLORIDE
     Indication: Hypertension
     Route: 048
  9. PRINIVIL [Concomitant]
     Active Substance: LISINOPRIL
     Indication: Hypertension
     Route: 048
  10. MILK OF MAGNESIA [Concomitant]
     Active Substance: MAGNESIUM HYDROXIDE
     Indication: Constipation
     Route: 048
  11. ZOFRAN [Concomitant]
     Active Substance: ONDANSETRON HYDROCHLORIDE
     Route: 048
  12. SENNA PLUS [Concomitant]
     Active Substance: DOCUSATE SODIUM\SENNOSIDES\SENNOSIDES A AND B
     Indication: Constipation
     Route: 048
  13. MULTIHANCE [Concomitant]
     Active Substance: GADOBENATE DIMEGLUMINE
     Route: 042
  14. GADAVIST [Concomitant]
     Active Substance: GADOBUTROL
     Route: 042

REACTIONS (3)
  - Arthralgia [Unknown]
  - Dry skin [Unknown]
  - Off label use [Unknown]
